FAERS Safety Report 5268291-5 (Version None)
Quarter: 2007Q1

REPORT INFORMATION
  Report Type: 
  Country: None (occurrence: None)
  Receive Date: 20070319
  Receipt Date: 20070312
  Transmission Date: 20070707
  Serious: Yes (Hospitalization)
  Sender: FDA-Public Use
  Company Number: FRWYE980212MAR07

PATIENT
  Age: 39 Year
  Sex: Female

DRUGS (5)
  1. RHINADVIL [Suspect]
     Route: 048
     Dates: start: 20070201, end: 20070201
  2. SOTALOL HCL [Concomitant]
     Dosage: UNKNOWN
  3. PAROXETINE HCL [Concomitant]
     Dosage: UNKNOWN
  4. AMOXICILLIN [Suspect]
     Route: 048
     Dates: start: 20070128, end: 20070203
  5. ACETAMINOPHEN [Suspect]
     Route: 048
     Dates: start: 20070128, end: 20070201

REACTIONS (3)
  - BILIARY DILATATION [None]
  - CYTOLYTIC HEPATITIS [None]
  - HYPOTONIA [None]
